FAERS Safety Report 4621299-2 (Version None)
Quarter: 2005Q1

REPORT INFORMATION
  Report Type: 
  Country: None (occurrence: None)
  Receive Date: 20050323
  Receipt Date: 20050323
  Transmission Date: 20050727
  Serious: Yes (Other)
  Sender: FDA-Public Use
  Company Number: None

PATIENT
  Sex: Female

DRUGS (1)
  1. CUTIVATE [Suspect]
     Dosage: 0.05%  30GM  APPLY TO FACE PRN

REACTIONS (1)
  - DRUG INEFFECTIVE [None]
